FAERS Safety Report 20100967 (Version 3)
Quarter: 2024Q4

REPORT INFORMATION
  Report Type: Report from Study
  Country: IT (occurrence: IT)
  Receive Date: 20211123
  Receipt Date: 20241127
  Transmission Date: 20250115
  Serious: Yes (Hospitalization, Other)
  Sender: ROCHE
  Company Number: IT-CELLTRION HEALTHCARE HUNGARY KFT-2021IT014852

PATIENT
  Age: 41 Year
  Sex: Female

DRUGS (5)
  1. PERTUZUMAB [Suspect]
     Active Substance: PERTUZUMAB
     Indication: Breast cancer metastatic
     Route: 065
  2. TRASTUZUMAB [Suspect]
     Active Substance: TRASTUZUMAB
     Indication: Breast cancer metastatic
     Dosage: UNK
     Route: 041
  3. DOCETAXEL [Suspect]
     Active Substance: DOCETAXEL
     Indication: Breast cancer metastatic
     Dosage: UNK
     Route: 065
  4. TAMOXIFEN [Suspect]
     Active Substance: TAMOXIFEN
     Indication: HER2 positive breast cancer
     Dosage: UNK
     Route: 065
  5. CARBOPLATIN [Suspect]
     Active Substance: CARBOPLATIN
     Indication: HER2 positive breast cancer
     Dosage: UNK
     Route: 065

REACTIONS (11)
  - Diarrhoea [Recovering/Resolving]
  - Dehydration [Recovering/Resolving]
  - Thrombocytopenia [Recovering/Resolving]
  - Vomiting [Recovering/Resolving]
  - Neutropenia [Recovering/Resolving]
  - Hyperfibrinogenaemia [Recovering/Resolving]
  - Anaemia [Recovering/Resolving]
  - Hypercalcaemia [Recovering/Resolving]
  - Asthenia [Recovering/Resolving]
  - Hypertransaminasaemia [Recovered/Resolved]
  - Cardiac failure [Recovering/Resolving]
